FAERS Safety Report 21207237 (Version 1)
Quarter: 2022Q3

REPORT INFORMATION
  Report Type: Spontaneous
  Country: US (occurrence: None)
  Receive Date: 20220811
  Receipt Date: 20220811
  Transmission Date: 20221026
  Serious: Yes (Hospitalization)
  Sender: FDA-Public Use
  Company Number: None

PATIENT
  Age: 69 Year
  Sex: Male

DRUGS (1)
  1. NUCALA [Suspect]
     Active Substance: MEPOLIZUMAB
     Dosage: 100 MG/ML SUBCUTANEOUS??INJECT 100 MG UNDER THE SKIN (SUBCUTANEOUS INJECTION) EVERY 4 WEEKS?
     Route: 058
     Dates: start: 20220427

REACTIONS (4)
  - Hospitalisation [None]
  - Emergency care [None]
  - Asthma [None]
  - Quality of life decreased [None]

NARRATIVE: CASE EVENT DATE: 20220707
